FAERS Safety Report 8444349-4 (Version None)
Quarter: 2012Q2

REPORT INFORMATION
  Report Type: 
  Country: None (occurrence: None)
  Receive Date: 20120618
  Receipt Date: 20120605
  Transmission Date: 20120825
  Serious: Yes (Hospitalization, Disabling)
  Sender: FDA-Public Use
  Company Number: ES-CELGENEUS-144-50794-12060637

PATIENT
  Age: 73 Year
  Sex: Female

DRUGS (2)
  1. RED BLOOD CELLS TRANSFUSIONS [Concomitant]
     Route: 065
     Dates: start: 20100201, end: 20100401
  2. VIDAZA [Suspect]
     Route: 065
     Dates: start: 20100210, end: 20100610

REACTIONS (2)
  - GENERAL PHYSICAL HEALTH DETERIORATION [None]
  - BRONCHIAL DISORDER [None]
